FAERS Safety Report 17291640 (Version 1)
Quarter: 2020Q1

REPORT INFORMATION
  Report Type: Spontaneous
  Country: NO (occurrence: DK)
  Receive Date: 20200121
  Receipt Date: 20200121
  Transmission Date: 20200409
  Serious: Yes (Other)
  Sender: FDA-Public Use
  Company Number: NO-BAYER-2019-168621

PATIENT
  Age: 36 Year
  Sex: Female

DRUGS (8)
  1. DICLOFENAC [Concomitant]
     Active Substance: DICLOFENAC
  2. D VITAMIN NATURE MADE [Concomitant]
  3. DIFLUCAN [Concomitant]
     Active Substance: FLUCONAZOLE
  4. OMEGA 3 [DOCOSAHEXAENOIC ACID;EICOSAPENTAENOIC ACID] [Concomitant]
     Active Substance: DOCONEXENT\ICOSAPENT
     Dosage: UNK
  5. FONTEX [Concomitant]
     Active Substance: FLUOXETINE HYDROCHLORIDE
     Dosage: UNK
  6. YASMIN [Suspect]
     Active Substance: DROSPIRENONE\ETHINYL ESTRADIOL
     Dosage: UNK
     Route: 048
     Dates: start: 19990701, end: 20190716
  7. ELIDEL [Concomitant]
     Active Substance: PIMECROLIMUS
  8. HUSK FIBRE [Concomitant]

REACTIONS (4)
  - Eczema [None]
  - Erythema [None]
  - Deep vein thrombosis [Not Recovered/Not Resolved]
  - Pain in extremity [Not Recovered/Not Resolved]

NARRATIVE: CASE EVENT DATE: 20190708
